APPROVED DRUG PRODUCT: TOBI
Active Ingredient: TOBRAMYCIN
Strength: 300MG/5ML
Dosage Form/Route: SOLUTION;INHALATION
Application: N050753 | Product #001 | TE Code: AN
Applicant: VIATRIS SPECIALTY LLC
Approved: Dec 22, 1997 | RLD: Yes | RS: Yes | Type: RX